FAERS Safety Report 14075757 (Version 2)
Quarter: 2017Q4

REPORT INFORMATION
  Report Type: Spontaneous
  Country: US (occurrence: US)
  Receive Date: 20171011
  Receipt Date: 20171013
  Transmission Date: 20180321
  Serious: Yes (Other)
  Sender: FDA-Public Use
  Company Number: US-TEVA-814652ACC

PATIENT
  Age: 54 Year
  Sex: Female

DRUGS (2)
  1. LEVOTHYROXINE. [Concomitant]
     Active Substance: LEVOTHYROXINE
  2. PARAGARD T 380A [Suspect]
     Active Substance: COPPER
     Dosage: 10 YEAR OLD

REACTIONS (3)
  - Device dislocation [Recovered/Resolved]
  - Device breakage [Unknown]
  - Embedded device [Unknown]

NARRATIVE: CASE EVENT DATE: 20170915
